FAERS Safety Report 17557322 (Version 2)
Quarter: 2020Q1

REPORT INFORMATION
  Report Type: Report from Study
  Country: JP (occurrence: JP)
  Receive Date: 20200318
  Receipt Date: 20200325
  Transmission Date: 20200409
  Serious: Yes (Hospitalization)
  Sender: FDA-Public Use
  Company Number: JP-ASTRAZENECA-2020SE37162

PATIENT
  Age: 74 Year
  Sex: Female
  Weight: 57 kg

DRUGS (5)
  1. CISPLATIN. [Suspect]
     Active Substance: CISPLATIN
     Indication: NON-SMALL CELL LUNG CANCER
     Dosage: 120 MG
     Route: 042
     Dates: start: 20200218
  2. PANVITAN (RETINOL AND CALCIFEROL COMBINED) [Concomitant]
     Dosage: 1 G
     Route: 048
     Dates: start: 20200125
  3. TAGRISSO [Suspect]
     Active Substance: OSIMERTINIB
     Indication: NON-SMALL CELL LUNG CANCER
     Route: 048
     Dates: start: 20200218, end: 20200223
  4. PEMETREXED. [Suspect]
     Active Substance: PEMETREXED
     Indication: NON-SMALL CELL LUNG CANCER
     Dosage: 790 MG
     Route: 042
     Dates: start: 20200218
  5. PRIMPERAN [Concomitant]
     Active Substance: METOCLOPRAMIDE HYDROCHLORIDE
     Dosage: 10.0MG AS REQUIRED
     Route: 065
     Dates: start: 20200219, end: 20200224

REACTIONS (4)
  - Decreased appetite [Recovering/Resolving]
  - Gastric ulcer [Recovering/Resolving]
  - Nausea [Unknown]
  - Hyponatraemia [Unknown]

NARRATIVE: CASE EVENT DATE: 20200221
